FAERS Safety Report 24374755 (Version 2)
Quarter: 2024Q4

REPORT INFORMATION
  Report Type: Spontaneous
  Country: TW (occurrence: TW)
  Receive Date: 20240927
  Receipt Date: 20241002
  Transmission Date: 20250114
  Serious: Yes (Death, Other)
  Sender: MERCK
  Company Number: TW-009507513-2409TWN009296

PATIENT
  Age: 62 Year
  Sex: Male

DRUGS (4)
  1. PEMBROLIZUMAB [Suspect]
     Active Substance: PEMBROLIZUMAB
     Dosage: CYCLE 4 (C4)
     Dates: start: 20240817
  2. GEMCITABINE [Suspect]
     Active Substance: GEMCITABINE
     Indication: Lung squamous cell carcinoma stage III
     Dosage: UNK
     Dates: start: 20180824, end: 20190812
  3. AFATINIB [Suspect]
     Active Substance: AFATINIB
     Indication: Lung squamous cell carcinoma stage III
     Dosage: UNK
     Dates: start: 201910, end: 202006
  4. CISPLATIN [Suspect]
     Active Substance: CISPLATIN
     Indication: Lung squamous cell carcinoma stage III
     Dosage: UNK
     Dates: start: 20180824, end: 20190812

REACTIONS (3)
  - Death [Fatal]
  - Malignant neoplasm progression [Unknown]
  - Prostate cancer [Unknown]

NARRATIVE: CASE EVENT DATE: 20200817
